FAERS Safety Report 6241512-8 (Version None)
Quarter: 2009Q2

REPORT INFORMATION
  Report Type: 
  Country: None (occurrence: None)
  Receive Date: 20090623
  Receipt Date: 20031120
  Transmission Date: 20091009
  Serious: Yes (Hospitalization, Other)
  Sender: FDA-Public Use
  Company Number: DE-ROCHE-351157

PATIENT
  Sex: Male

DRUGS (57)
  1. DACLIZUMAB [Suspect]
     Route: 042
     Dates: start: 20031011
  2. DACLIZUMAB [Suspect]
     Route: 042
     Dates: start: 20031028, end: 20031209
  3. MYCOPHENOLATE MOFETIL [Suspect]
     Dosage: DRUG REPORTED: MYCOPHENOLAT MOFETIL
     Route: 048
     Dates: start: 20031012
  4. MYCOPHENOLATE MOFETIL [Suspect]
     Route: 048
     Dates: start: 20031018
  5. MYCOPHENOLATE MOFETIL [Suspect]
     Route: 048
     Dates: start: 20031019
  6. MYCOPHENOLATE MOFETIL [Suspect]
     Route: 048
     Dates: start: 20031022
  7. MYCOPHENOLATE MOFETIL [Suspect]
     Route: 048
     Dates: start: 20031023
  8. MYCOPHENOLATE MOFETIL [Suspect]
     Route: 048
     Dates: start: 20031025
  9. MYCOPHENOLATE MOFETIL [Suspect]
     Route: 048
     Dates: start: 20031107
  10. MYCOPHENOLATE MOFETIL [Suspect]
     Route: 048
     Dates: start: 20031204
  11. MYCOPHENOLATE MOFETIL [Suspect]
     Route: 048
     Dates: start: 20031209, end: 20040210
  12. MYCOPHENOLATE MOFETIL [Suspect]
     Route: 048
     Dates: end: 20041024
  13. TACROLIMUS [Suspect]
     Route: 048
     Dates: start: 20031012, end: 20040101
  14. TACROLIMUS [Suspect]
     Route: 048
     Dates: start: 20040616
  15. BELOC-ZOK [Concomitant]
     Route: 048
     Dates: start: 20031015, end: 20040326
  16. BELOC-ZOK [Concomitant]
     Route: 048
     Dates: start: 20040504, end: 20040101
  17. CYMEVEN [Concomitant]
     Route: 048
     Dates: start: 20031012
  18. CYMEVEN [Concomitant]
     Route: 048
     Dates: start: 20031020, end: 20031109
  19. CYMEVEN [Concomitant]
     Route: 048
     Dates: start: 20031115, end: 20040114
  20. CYMEVEN [Concomitant]
     Route: 048
     Dates: start: 20040319, end: 20040421
  21. HYDROCHLOROTHIAZIDE [Concomitant]
     Route: 048
     Dates: start: 20031111, end: 20031225
  22. HYDROCHLOROTHIAZIDE [Concomitant]
     Route: 048
     Dates: start: 20031226, end: 20040101
  23. NORVASC [Concomitant]
     Route: 048
  24. NORVASC [Concomitant]
     Route: 048
     Dates: start: 20031016
  25. AMPICILLIN [Concomitant]
     Route: 042
     Dates: start: 20031112
  26. CEFAZOLIN [Concomitant]
     Route: 042
     Dates: start: 20031011, end: 20031013
  27. CEFAZOLIN [Concomitant]
     Route: 042
     Dates: start: 20031017, end: 20031019
  28. CILASTATIN [Concomitant]
     Route: 042
     Dates: start: 20031023, end: 20031104
  29. CIPROFLOXACIN [Concomitant]
     Route: 048
     Dates: start: 20031020, end: 20031024
  30. DARBEPOETIN ALFA [Concomitant]
     Dosage: ROUTE REPORTED: INTRAVENOUS
     Route: 050
     Dates: start: 20031028
  31. DARBEPOETIN ALFA [Concomitant]
     Dosage: ROUTE REPORTED: SUBCUTANEOUS
     Route: 050
     Dates: start: 20040223
  32. FUROSEMID [Concomitant]
     Route: 048
     Dates: start: 20031019, end: 20031021
  33. FUROSEMID [Concomitant]
     Route: 048
     Dates: start: 20031029
  34. FUROSEMID [Concomitant]
     Dosage: DOSING AMOUNT REPORTED: 40 GRAM BUT CAPTURED IN MG AS DOSE IN GRAM BEING VERY HOGH DOSE SEEMS A TYPO
     Route: 048
     Dates: start: 20040113
  35. FUROSEMID [Concomitant]
     Route: 048
     Dates: start: 20040221, end: 20040222
  36. FUROSEMID [Concomitant]
     Route: 048
     Dates: end: 20040101
  37. GENTAMYCIN SULFATE [Concomitant]
     Route: 042
     Dates: start: 20031112
  38. GENTAMYCIN SULFATE [Concomitant]
     Route: 042
     Dates: start: 20031115, end: 20031129
  39. GENTAMYCIN SULFATE [Concomitant]
     Route: 042
     Dates: start: 20031130, end: 20031203
  40. GENTAMYCIN SULFATE [Concomitant]
     Route: 042
     Dates: start: 20031204, end: 20031209
  41. GLYCEROLTRINITRAT [Concomitant]
     Route: 048
     Dates: start: 20031015, end: 20031017
  42. METHYLPREDNISOLONE [Suspect]
     Route: 042
     Dates: start: 20031011, end: 20031013
  43. METHYLPREDNISOLONE [Suspect]
     Route: 048
     Dates: start: 20031014, end: 20031126
  44. METHYLPREDNISOLONE [Suspect]
     Route: 048
     Dates: start: 20031202
  45. METHYLPREDNISOLONE [Suspect]
     Route: 048
     Dates: start: 20040114
  46. METHYLPREDNISOLONE [Suspect]
     Route: 048
     Dates: start: 20040617
  47. METHYLPREDNISOLONE [Suspect]
     Route: 048
     Dates: start: 20040823
  48. METRONIDAZOLE [Concomitant]
     Route: 048
     Dates: start: 20031023, end: 20031031
  49. PRAVASTATIN SODIUM [Concomitant]
     Route: 048
     Dates: start: 20031012, end: 20040113
  50. PRAVASTATIN SODIUM [Concomitant]
     Route: 048
     Dates: start: 20040218, end: 20040222
  51. VESDIL [Concomitant]
     Route: 048
     Dates: start: 20031102, end: 20031208
  52. VESDIL [Concomitant]
     Route: 048
     Dates: start: 20031216, end: 20031224
  53. VESDIL [Concomitant]
     Route: 048
     Dates: start: 20031230, end: 20040101
  54. VESDIL [Concomitant]
     Route: 048
     Dates: end: 20040101
  55. VANCOMYCIN [Concomitant]
     Route: 042
     Dates: start: 20031030, end: 20031108
  56. VANCOMYCIN [Concomitant]
     Route: 048
     Dates: end: 20031109
  57. VANCOMYCIN [Concomitant]
     Route: 048
     Dates: start: 20031220, end: 20040113

REACTIONS (2)
  - ENDOCARDITIS [None]
  - HAEMATOMA [None]
